FAERS Safety Report 9542363 (Version 1)
Quarter: 2013Q3

REPORT INFORMATION
  Report Type: Spontaneous
  Country: US (occurrence: None)
  Receive Date: 20130919
  Receipt Date: 20130919
  Transmission Date: 20140515
  Serious: Yes (Hospitalization)
  Sender: FDA-Public Use
  Company Number: None

PATIENT
  Age: 31 Year
  Sex: Female
  Weight: 68.04 kg

DRUGS (2)
  1. CYMBALTA [Suspect]
     Dosage: 1 CAP
     Route: 048
     Dates: start: 20130803, end: 20130918
  2. CYMBALTA [Suspect]
     Indication: DEPRESSION
     Dosage: 1 CAP
     Route: 048
     Dates: start: 20130803, end: 20130918

REACTIONS (3)
  - Pancreatitis acute [None]
  - Cholecystectomy [None]
  - Hepatic enzyme increased [None]
